FAERS Safety Report 12182808 (Version 1)
Quarter: 2016Q1

REPORT INFORMATION
  Report Type: Spontaneous
  Country: US (occurrence: None)
  Receive Date: 20160315
  Receipt Date: 20160315
  Transmission Date: 20160526
  Serious: No
  Sender: FDA-Public Use
  Company Number: None

PATIENT
  Age: 61 Year
  Sex: Male

DRUGS (6)
  1. PROPAFENONE. [Suspect]
     Active Substance: PROPAFENONE
  2. METOPROLOL. [Suspect]
     Active Substance: METOPROLOL
  3. AMLODIPINE BESYLATE. [Suspect]
     Active Substance: AMLODIPINE BESYLATE
  4. GLIPIZIDE. [Suspect]
     Active Substance: GLIPIZIDE
  5. WARFARIN [Suspect]
     Active Substance: WARFARIN
  6. ENALAPRIL [Suspect]
     Active Substance: ENALAPRIL

REACTIONS (1)
  - Therapy change [None]
